FAERS Safety Report 4580423-0 (Version None)
Quarter: 2005Q1

REPORT INFORMATION
  Report Type: 
  Country: None (occurrence: None)
  Receive Date: 20050214
  Receipt Date: 20040116
  Transmission Date: 20050727
  Serious: No
  Sender: FDA-Public Use
  Company Number: US-GLAXOSMITHKLINE-A0494332A

PATIENT
  Age: 56 Year
  Sex: Female
  Weight: 70 kg

DRUGS (4)
  1. LAMICTAL [Suspect]
     Indication: BIPOLAR DISORDER
     Dosage: 50MG UNKNOWN
     Route: 048
     Dates: start: 20031117, end: 20031212
  2. SEROQUEL [Concomitant]
     Dosage: 200MG AT NIGHT
     Route: 050
     Dates: start: 20021201
  3. NEURONTIN [Concomitant]
     Indication: FIBROMYALGIA
     Dosage: 600MG THREE TIMES PER DAY
     Route: 048
     Dates: start: 20021201
  4. WELLBUTRIN [Concomitant]
     Indication: DEPRESSION
     Dosage: 200MG TWICE PER DAY
     Route: 048
     Dates: start: 20020201

REACTIONS (1)
  - RASH [None]
